FAERS Safety Report 18797485 (Version 2)
Quarter: 2021Q2

REPORT INFORMATION
  Report Type: Spontaneous
  Country: JP (occurrence: JP)
  Receive Date: 20210128
  Receipt Date: 20210503
  Transmission Date: 20210717
  Serious: Yes (Other)
  Sender: FDA-Public Use
  Company Number: JP-AMGEN-JPNSP2019110254

PATIENT
  Age: 74 Year
  Sex: Female

DRUGS (2)
  1. PRALIA [Suspect]
     Active Substance: DENOSUMAB
     Indication: OSTEOPOROSIS
     Dosage: 60 MILLIGRAM, Q6MO
     Route: 065
     Dates: start: 20190702, end: 202001
  2. METHOTREXATE. [Concomitant]
     Active Substance: METHOTREXATE
     Indication: RHEUMATIC DISORDER
     Dosage: UNK
     Route: 048
     Dates: start: 2020

REACTIONS (9)
  - Pain in jaw [Unknown]
  - Tooth disorder [Unknown]
  - Physical deconditioning [Unknown]
  - Femur fracture [Unknown]
  - Dental discomfort [Unknown]
  - Asthenia [Unknown]
  - Lumbar vertebral fracture [Unknown]
  - Rheumatic disorder [Not Recovered/Not Resolved]
  - Product dose omission issue [Unknown]

NARRATIVE: CASE EVENT DATE: 2019
